FAERS Safety Report 12626656 (Version 1)
Quarter: 2016Q3

REPORT INFORMATION
  Report Type: Spontaneous
  Country: US (occurrence: US)
  Receive Date: 20160805
  Receipt Date: 20160805
  Transmission Date: 20161109
  Serious: No
  Sender: FDA-Public Use
  Company Number: US-VANDA PHARMACEUTICALS, INC-2016TASUS001227

PATIENT
  Age: 65 Year
  Sex: Male

DRUGS (1)
  1. HETLIOZ [Suspect]
     Active Substance: TASIMELTEON
     Indication: CIRCADIAN RHYTHM SLEEP DISORDER
     Dosage: 20 MG, ONCE DAILY
     Route: 048
     Dates: start: 20160508

REACTIONS (5)
  - Pain [Not Recovered/Not Resolved]
  - Constipation [Unknown]
  - Flatulence [Not Recovered/Not Resolved]
  - Adverse drug reaction [Unknown]
  - Faecaloma [Unknown]

NARRATIVE: CASE EVENT DATE: 20160515
